FAERS Safety Report 7890036 (Version 10)
Quarter: 2012Q4

REPORT INFORMATION
  Report Type: 
  Country: US (occurrence: US)
  Receive Date: 20110407
  Receipt Date: 20121214
  Transmission Date: 20130627
  Serious: Yes (Hospitalization, Other)
  Sender: FDA-Public Use
  Company Number: PHHY2011US25495

PATIENT
  Age: 31 Year
  Sex: Female

DRUGS (15)
  1. GILENYA [Suspect]
     Indication: RELAPSING-REMITTING MULTIPLE SCLEROSIS
     Dosage: 0.5 mg, QD
     Route: 048
     Dates: start: 20101229, end: 20110323
  2. TYSABRI [Concomitant]
     Dosage: 300 mg, QW4
  3. LEXAPRO [Concomitant]
     Dosage: 20 mg, UNK
     Route: 048
  4. TRAZODONE [Concomitant]
     Dosage: 50 mg, UNK
  5. AMPICILLIN [Concomitant]
     Dosage: 1 DF, BID
     Route: 048
  6. PYRIDIUM [Concomitant]
     Dosage: 1 DF, TID
  7. LEVONORGESTREL [Concomitant]
  8. PEPCID [Concomitant]
     Dosage: 40 mg, QD
  9. PREDNISONE [Concomitant]
     Dosage: 1 DF, TID
  10. BENADRYL [Concomitant]
  11. PROTONIX [Concomitant]
  12. FERROUS FUMARATE [Concomitant]
     Dosage: 1 DF, QD
  13. LAMICTAL [Concomitant]
     Dosage: UNK UKN, UNK
  14. MULTIVITAMIN [Concomitant]
     Dosage: UNK UKN, UNK
  15. ASPIRIN [Concomitant]
     Dosage: UNK UKN, UNK

REACTIONS (52)
  - Multiple sclerosis relapse [Recovering/Resolving]
  - Central nervous system lesion [Recovering/Resolving]
  - Intracranial pressure increased [Recovering/Resolving]
  - Brain oedema [Recovering/Resolving]
  - Brain herniation [Recovering/Resolving]
  - Cognitive disorder [Recovering/Resolving]
  - Unresponsive to stimuli [Recovering/Resolving]
  - Hemiparesis [Recovering/Resolving]
  - Personality change [Recovering/Resolving]
  - Aphasia [Recovering/Resolving]
  - Asthenia [Recovering/Resolving]
  - Anger [Unknown]
  - Fatigue [Unknown]
  - Hostility [Unknown]
  - Aggression [Recovering/Resolving]
  - Memory impairment [Recovering/Resolving]
  - Hypoaesthesia [Recovering/Resolving]
  - Affective disorder [Unknown]
  - Speech disorder [Recovering/Resolving]
  - Gait disturbance [Recovering/Resolving]
  - Headache [Recovering/Resolving]
  - Convulsion [Recovering/Resolving]
  - Loss of consciousness [Unknown]
  - Cardiac myxoma [Unknown]
  - Deep vein thrombosis [Recovering/Resolving]
  - Optic neuritis [Recovered/Resolved]
  - Scotoma [Unknown]
  - Pupillary deformity [Recovering/Resolving]
  - Visual acuity reduced [Recovering/Resolving]
  - Eye pain [Unknown]
  - Atrophy [Unknown]
  - Nystagmus [Unknown]
  - Dysphonia [Recovering/Resolving]
  - Somnolence [Unknown]
  - Eating disorder [Recovering/Resolving]
  - Confusional state [Recovering/Resolving]
  - Judgement impaired [Unknown]
  - Affect lability [Unknown]
  - Anxiety [Recovering/Resolving]
  - Musculoskeletal stiffness [Unknown]
  - Cystitis [Not Recovered/Not Resolved]
  - Dysuria [Not Recovered/Not Resolved]
  - Pollakiuria [Not Recovered/Not Resolved]
  - Micturition urgency [Not Recovered/Not Resolved]
  - Urinary retention [Not Recovered/Not Resolved]
  - Incontinence [Recovering/Resolving]
  - Depression [Unknown]
  - Influenza [Recovering/Resolving]
  - Dehydration [Recovering/Resolving]
  - Dizziness [Recovering/Resolving]
  - Drug ineffective [Unknown]
  - Phlebitis [Unknown]
